FAERS Safety Report 5317929-2 (Version None)
Quarter: 2007Q1

REPORT INFORMATION
  Report Type: 
  Country: None (occurrence: None)
  Receive Date: 20070201
  Receipt Date: 20060124
  Transmission Date: 20070707
  Serious: Yes (Other)
  Sender: FDA-Public Use
  Company Number: USEN-6LCSXR

PATIENT
  Age: 71 Year
  Sex: Male

DRUGS (1)
  1. DURAPREP [Suspect]
     Indication: PREOPERATIVE CARE
     Dosage: TOPICAL
     Route: 061
     Dates: start: 20060124

REACTIONS (1)
  - THERMAL BURN [None]
